FAERS Safety Report 4540838-3 (Version None)
Quarter: 2004Q4

REPORT INFORMATION
  Report Type: 
  Country: None (occurrence: None)
  Receive Date: 20041229
  Receipt Date: 20041001
  Transmission Date: 20050328
  Serious: Yes (Life-Threatening, Hospitalization)
  Sender: FDA-Public Use
  Company Number: ES-MERCK-0410ESP00003

PATIENT
  Age: 52 Year
  Sex: Male

DRUGS (2)
  1. VIOXX [Suspect]
     Indication: PERIARTHRITIS
     Route: 048
     Dates: start: 20040801, end: 20040910
  2. VIOXX [Suspect]
     Indication: ENTHESOPATHY
     Route: 048
     Dates: start: 20040801, end: 20040910

REACTIONS (1)
  - ACUTE MYOCARDIAL INFARCTION [None]
